FAERS Safety Report 17031273 (Version 2)
Quarter: 2019Q4

REPORT INFORMATION
  Report Type: Spontaneous
  Country: JP (occurrence: JP)
  Receive Date: 20191114
  Receipt Date: 20191227
  Transmission Date: 20200122
  Serious: Yes (Other)
  Sender: FDA-Public Use
  Company Number: JP-ASTRAZENECA-2019SF10600

PATIENT
  Age: 28415 Day
  Sex: Female
  Weight: 50 kg

DRUGS (1)
  1. TAGRISSO [Suspect]
     Active Substance: OSIMERTINIB
     Indication: NON-SMALL CELL LUNG CANCER
     Route: 048
     Dates: start: 20190621, end: 20190725

REACTIONS (4)
  - Dermatitis [Unknown]
  - Stomatitis [Recovering/Resolving]
  - Diarrhoea [Recovered/Resolved]
  - Toxic skin eruption [Recovering/Resolving]

NARRATIVE: CASE EVENT DATE: 20190626
